FAERS Safety Report 8400332-6 (Version None)
Quarter: 2012Q2

REPORT INFORMATION
  Report Type: 
  Country: None (occurrence: None)
  Receive Date: 20120531
  Receipt Date: 20120518
  Transmission Date: 20120825
  Serious: Yes (Death, Hospitalization)
  Sender: FDA-Public Use
  Company Number: US-ACTELION-A-NJ2012-64565

PATIENT

DRUGS (7)
  1. ALBUTEROL [Concomitant]
  2. PREDNISONE TAB [Concomitant]
  3. FUROSEMIDE [Concomitant]
  4. METHOTREXATE [Concomitant]
  5. EPOPROSTENOL SODIUM [Suspect]
     Indication: PULMONARY ARTERIAL HYPERTENSION
     Dosage: UNK
     Route: 041
     Dates: start: 20111117, end: 20120517
  6. OXYGEN [Concomitant]
  7. SPIRONOLACTONE [Concomitant]

REACTIONS (12)
  - PULSELESS ELECTRICAL ACTIVITY [None]
  - CONCOMITANT DISEASE AGGRAVATED [None]
  - RESPIRATORY FAILURE [None]
  - HYPOXIA [None]
  - DYSPNOEA [None]
  - PULMONARY ARTERIAL HYPERTENSION [None]
  - CARDIOGENIC SHOCK [None]
  - FLUID OVERLOAD [None]
  - CHEST DISCOMFORT [None]
  - CARDIAC FAILURE [None]
  - PNEUMONIA [None]
  - LUNG DISORDER [None]
